FAERS Safety Report 4630502-4 (Version None)
Quarter: 2005Q2

REPORT INFORMATION
  Report Type: 
  Country: None (occurrence: None)
  Receive Date: 20050406
  Receipt Date: 20050318
  Transmission Date: 20051028
  Serious: Yes (Other)
  Sender: FDA-Public Use
  Company Number: USA050393571

PATIENT
  Age: 48 Year
  Sex: Female

DRUGS (4)
  1. ALIMTA [Suspect]
     Indication: NON-SMALL CELL LUNG CANCER STAGE IV
     Dosage: 500 MG/M2
     Dates: start: 20050304
  2. FOLIC ACID [Concomitant]
  3. VITAMIN B-12 [Concomitant]
  4. DEXANETASONE [Concomitant]

REACTIONS (3)
  - NEUTROPENIA [None]
  - PLEURAL EFFUSION [None]
  - WHITE BLOOD CELL COUNT DECREASED [None]
